FAERS Safety Report 19169103 (Version 2)
Quarter: 2021Q2

REPORT INFORMATION
  Report Type: Spontaneous
  Country: JP (occurrence: JP)
  Receive Date: 20210422
  Receipt Date: 20210611
  Transmission Date: 20210717
  Serious: Yes (Hospitalization, Other)
  Sender: FDA-Public Use
  Company Number: JP-OTSUKA-2021_010209

PATIENT
  Age: 69 Year
  Sex: Female

DRUGS (3)
  1. REXULTI [Suspect]
     Active Substance: BREXPIPRAZOLE
     Indication: SCHIZOPHRENIA
     Dosage: 1 MG, QD
     Route: 048
     Dates: end: 20210324
  2. FLUVOXAMINE MALEATE. [Suspect]
     Active Substance: FLUVOXAMINE MALEATE
     Indication: PRODUCT USED FOR UNKNOWN INDICATION
     Dosage: UNK
     Route: 065
     Dates: end: 20210324
  3. BELSOMRA [Concomitant]
     Active Substance: SUVOREXANT
     Indication: PRODUCT USED FOR UNKNOWN INDICATION
     Dosage: UNK
     Route: 065

REACTIONS (12)
  - Dehydration [Recovering/Resolving]
  - Decreased appetite [Recovering/Resolving]
  - Blood potassium abnormal [Recovering/Resolving]
  - Feeding disorder [Recovering/Resolving]
  - Blood sodium abnormal [Recovering/Resolving]
  - Blood creatinine increased [Unknown]
  - Electrolyte imbalance [Recovering/Resolving]
  - Pyrexia [Unknown]
  - Nausea [Unknown]
  - Blood urea abnormal [Recovering/Resolving]
  - Neuroleptic malignant syndrome [Recovering/Resolving]
  - Lipids abnormal [Not Recovered/Not Resolved]

NARRATIVE: CASE EVENT DATE: 20210324
